FAERS Safety Report 5533817-0 (Version None)
Quarter: 2007Q4

REPORT INFORMATION
  Report Type: 
  Country: None (occurrence: None)
  Receive Date: 20071204
  Receipt Date: 20071122
  Transmission Date: 20080405
  Serious: Yes (Other)
  Sender: FDA-Public Use
  Company Number: HU-GENENTECH-251309

PATIENT
  Sex: Male

DRUGS (5)
  1. MABTHERA [Suspect]
     Indication: LYMPHOMA
     Dosage: UNK, UNK
     Dates: start: 20070124, end: 20070711
  2. CYCLOPHOSPHAMIDE [Concomitant]
     Indication: LYMPHOMA
     Dates: start: 20070124
  3. DOXORUBICIN HCL [Concomitant]
     Indication: LYMPHOMA
     Dates: start: 20070124
  4. VINCRISTINE [Concomitant]
     Indication: LYMPHOMA
     Dates: start: 20070124
  5. PREDNISONE TAB [Concomitant]
     Indication: LYMPHOMA
     Dates: start: 20070124

REACTIONS (5)
  - ARTHRITIS [None]
  - AUTOIMMUNE DISORDER [None]
  - GRAFT VERSUS HOST DISEASE [None]
  - SKIN EXFOLIATION [None]
  - VISUAL ACUITY REDUCED [None]
